FAERS Safety Report 10923111 (Version 2)
Quarter: 2015Q2

REPORT INFORMATION
  Report Type: Spontaneous
  Country: NL (occurrence: NL)
  Receive Date: 20150317
  Receipt Date: 20150413
  Transmission Date: 20150821
  Serious: Yes (Hospitalization)
  Sender: FDA-Public Use
  Company Number: PHHY2015NL029693

PATIENT
  Sex: Male

DRUGS (3)
  1. TICAGRELOR [Concomitant]
     Active Substance: TICAGRELOR
     Indication: STENT PLACEMENT
     Route: 065
  2. ACENOCOUMAROL [Concomitant]
     Active Substance: ACENOCOUMAROL
     Indication: STENT PLACEMENT
     Route: 065
  3. RITALIN [Suspect]
     Active Substance: METHYLPHENIDATE HYDROCHLORIDE
     Indication: ATTENTION DEFICIT/HYPERACTIVITY DISORDER
     Dosage: 10 MG (VARYING UP TO 80MG A DAY)
     Route: 065
     Dates: start: 2000, end: 201310

REACTIONS (2)
  - Peripheral artery stenosis [Recovered/Resolved with Sequelae]
  - Peripheral embolism [Recovered/Resolved with Sequelae]

NARRATIVE: CASE EVENT DATE: 201310
